FAERS Safety Report 13812697 (Version 3)
Quarter: 2017Q4

REPORT INFORMATION
  Report Type: Spontaneous
  Country: JP (occurrence: JP)
  Receive Date: 20170729
  Receipt Date: 20171128
  Transmission Date: 20180320
  Serious: Yes (Other)
  Sender: FDA-Public Use
  Company Number: JP-MYLANLABS-2017M1044310

PATIENT
  Age: 46 Year
  Sex: Female

DRUGS (5)
  1. COLDRIN [Suspect]
     Active Substance: ACETAMINOPHEN\PSEUDOEPHEDRINE HYDROCHLORIDE
     Indication: PRODUCT USED FOR UNKNOWN INDICATION
     Route: 048
  2. GRACEVIT [Suspect]
     Active Substance: SITAFLOXACIN
     Indication: PRODUCT USED FOR UNKNOWN INDICATION
     Route: 048
  3. CLARITHROMYCIN MYLAN [Suspect]
     Active Substance: CLARITHROMYCIN
     Indication: PRODUCT USED FOR UNKNOWN INDICATION
     Dosage: UNK
     Route: 048
  4. MUCODYNE [Suspect]
     Active Substance: CARBOCYSTEINE
     Indication: PRODUCT USED FOR UNKNOWN INDICATION
     Route: 048
  5. MUCOSOLVAN [Suspect]
     Active Substance: AMBROXOL HYDROCHLORIDE
     Indication: PRODUCT USED FOR UNKNOWN INDICATION
     Route: 048

REACTIONS (1)
  - Erythema multiforme [Unknown]
